FAERS Safety Report 8954575 (Version 3)
Quarter: 2013Q2

REPORT INFORMATION
  Report Type: Spontaneous
  Country: JP (occurrence: JP)
  Receive Date: 20121210
  Receipt Date: 20130409
  Transmission Date: 20140414
  Serious: Yes (Other)
  Sender: FDA-Public Use
  Company Number: PHHY2012JP112670

PATIENT
  Age: 62 Year
  Sex: Female

DRUGS (4)
  1. ZOMETA [Suspect]
     Indication: METASTASES TO BONE
     Dosage: 4 MG, PER ADMINISTRATION
     Route: 041
     Dates: start: 2006
  2. AREDIA [Suspect]
     Indication: METASTASES TO BONE
     Dosage: 90 MG, PER ADMINISTRATION
     Route: 041
     Dates: start: 2005, end: 2006
  3. MINOMYCIN [Concomitant]
     Route: 048
  4. KLARICID [Concomitant]
     Route: 048

REACTIONS (5)
  - Osteonecrosis of jaw [Recovered/Resolved]
  - Gingivitis [Recovering/Resolving]
  - Purulent discharge [Recovering/Resolving]
  - Toothache [Unknown]
  - Swelling [Unknown]
